FAERS Safety Report 9637550 (Version 3)
Quarter: 2014Q1

REPORT INFORMATION
  Report Type: Report from Study
  Country: BR (occurrence: BR)
  Receive Date: 20131022
  Receipt Date: 20140106
  Transmission Date: 20141002
  Serious: Yes (Other)
  Sender: FDA-Public Use
  Company Number: BR-ROCHE-1255816

PATIENT
  Sex: Male
  Weight: 74 kg

DRUGS (5)
  1. ROFERON-A [Suspect]
     Indication: HEPATITIS C
     Route: 065
     Dates: start: 200911, end: 201104
  2. RIBAVIRIN [Suspect]
     Indication: HEPATITIS C
     Route: 065
     Dates: start: 200911, end: 201104
  3. DUOMOX [Concomitant]
     Indication: PROSTATIC DISORDER
     Dosage: IN THE EVENINGS.
     Route: 065
  4. B COMPLEX VITAMIN [Concomitant]
     Indication: LIVER DISORDER
     Route: 065
  5. FOLIC ACID [Concomitant]
     Dosage: FOR UNSPECIFIED PALATELETS DISORDER.
     Route: 065

REACTIONS (9)
  - Drug ineffective [Unknown]
  - Varices oesophageal [Not Recovered/Not Resolved]
  - Pyrexia [Recovered/Resolved]
  - Decreased appetite [Recovered/Resolved]
  - Depressed mood [Recovered/Resolved]
  - Weight decreased [Recovered/Resolved]
  - Chills [Recovered/Resolved]
  - Platelet count decreased [Not Recovered/Not Resolved]
  - Prostatic disorder [Unknown]
